FAERS Safety Report 19007031 (Version 1)
Quarter: 2021Q1

REPORT INFORMATION
  Report Type: Spontaneous
  Country: US (occurrence: US)
  Receive Date: 20210313
  Receipt Date: 20210313
  Transmission Date: 20210420
  Serious: Yes (Hospitalization, Other)
  Sender: FDA-Public Use
  Company Number: None

PATIENT
  Sex: Female

DRUGS (2)
  1. COMBIVENT; LEVOTHYROXIN; AZESTALINE [Concomitant]
  2. CIMZIA [Suspect]
     Active Substance: CERTOLIZUMAB PEGOL
     Indication: RHEUMATOID ARTHRITIS
     Dosage: ?          OTHER FREQUENCY:WEEKS 0, 2, AND 4;?
     Route: 058
     Dates: start: 20201125

REACTIONS (2)
  - COVID-19 [None]
  - Injection site pruritus [None]
